FAERS Safety Report 11694539 (Version 2)
Quarter: 2015Q4

REPORT INFORMATION
  Report Type: Spontaneous
  Country: US (occurrence: US)
  Receive Date: 20151103
  Receipt Date: 20151118
  Transmission Date: 20160304
  Serious: Yes (Hospitalization, Other)
  Sender: FDA-Public Use
  Company Number: US-BAYER-2015-449667

PATIENT
  Age: 76 Year
  Sex: Female
  Weight: 79.37 kg

DRUGS (2)
  1. ALEVE PM [Suspect]
     Active Substance: DIPHENHYDRAMINE HYDROCHLORIDE\NAPROXEN SODIUM
     Indication: SLEEP DISORDER THERAPY
     Dosage: 1 DF, PRN
     Route: 048
     Dates: start: 2014
  2. BAYER LOW DOSE [Suspect]
     Active Substance: ASPIRIN
     Dosage: 1 DF, HS
     Dates: start: 2011

REACTIONS (5)
  - Product use issue [None]
  - Product use issue [None]
  - Dehydration [None]
  - Diarrhoea [None]
  - Renal disorder [None]

NARRATIVE: CASE EVENT DATE: 2011
